FAERS Safety Report 9981422 (Version 1)
Quarter: 2014Q1

REPORT INFORMATION
  Report Type: Spontaneous
  Country: AT (occurrence: AT)
  Receive Date: 20140307
  Receipt Date: 20140307
  Transmission Date: 20141002
  Serious: Yes (Other)
  Sender: FDA-Public Use
  Company Number: AT-JNJFOC-20140215459

PATIENT
  Sex: Female
  Weight: 80 kg

DRUGS (5)
  1. DOXORUBICIN HYDROCHLORIDE (CAELYX) [Suspect]
     Indication: UTERINE LEIOMYOSARCOMA
     Dosage: 50 MG/M2
     Route: 042
     Dates: start: 20131205
  2. AMLODIPINE [Concomitant]
     Route: 065
  3. EMEND [Concomitant]
     Dosage: ONCE IN THE EVENING
     Route: 065
  4. NEULASTA [Concomitant]
     Dosage: ONCE A DAY AFTER CHEMOTHERAPY
     Route: 065
  5. REMISTAT [Concomitant]
     Dosage: IN THE EVENING
     Route: 065

REACTIONS (2)
  - Skin disorder [Not Recovered/Not Resolved]
  - Off label use [Unknown]
